FAERS Safety Report 6728252-3 (Version None)
Quarter: 2010Q2

REPORT INFORMATION
  Report Type: 
  Country: None (occurrence: None)
  Receive Date: 20100517
  Receipt Date: 20100505
  Transmission Date: 20101027
  Serious: Yes (Hospitalization)
  Sender: FDA-Public Use
  Company Number: JP-ASTRAZENECA-2010SE22081

PATIENT
  Age: 28 Year
  Sex: Female

DRUGS (4)
  1. CANDESARTAN CILEXETIL [Suspect]
     Indication: CARDIAC FAILURE
     Route: 048
  2. METOPROLOL TARTRATE [Concomitant]
     Indication: CARDIAC FAILURE
     Route: 065
  3. RAMIPRIL [Concomitant]
     Indication: CARDIAC FAILURE
     Route: 065
  4. ASPIRIN [Concomitant]
     Indication: CARDIAC FAILURE
     Route: 065

REACTIONS (2)
  - DRUG EXPOSURE DURING PREGNANCY [None]
  - OLIGOHYDRAMNIOS [None]
